FAERS Safety Report 10173910 (Version 1)
Quarter: 2014Q2

REPORT INFORMATION
  Report Type: Spontaneous
  Country: US (occurrence: None)
  Receive Date: 20140513
  Receipt Date: 20140513
  Transmission Date: 20141212
  Serious: Yes (Other)
  Sender: FDA-Public Use
  Company Number: 2014AP002911

PATIENT
  Age: 40 Year
  Sex: Male

DRUGS (10)
  1. VERAPAMIL HYDROCHLORIDE [Suspect]
     Indication: PRODUCT USED FOR UNKNOWN INDICATION
     Dosage: EXTENDED-RELEASE
     Route: 048
  2. LIPID EMULSION [Suspect]
     Indication: HYPOTENSION
     Dosage: 20 % 1.5 ML/KG
  3. CHARCOAL (CHARCOAL, ACTIVATED) [Concomitant]
  4. INSULIN (INSULIN) [Concomitant]
  5. EPINEPHRINE (EPINEPHRINE) [Concomitant]
  6. NOREPIEPHRINE (NOREPINEPHRINE) [Concomitant]
  7. DOBUTAMINE (DOBUTAMINE) [Concomitant]
  8. VASOPRESSIN (VASOPORESSIN) [Concomitant]
  9. PHENYLPHRINE (PHENYLPHRINE) [Concomitant]
  10. SODIUM BICARBONATE (SODIUM BICARBONATE) [Concomitant]

REACTIONS (8)
  - Acute respiratory distress syndrome [None]
  - Anuria [None]
  - Nodal rhythm [None]
  - Metabolic acidosis [None]
  - Haemodialysis complication [None]
  - Hyperlipidaemia [None]
  - Laboratory test interference [None]
  - Hypotension [None]
